FAERS Safety Report 15773784 (Version 3)
Quarter: 2019Q1

REPORT INFORMATION
  Report Type: Spontaneous
  Country: FR (occurrence: FR)
  Receive Date: 20181229
  Receipt Date: 20190211
  Transmission Date: 20190417
  Serious: Yes (Hospitalization, Other)
  Sender: FDA-Public Use
  Company Number: FR-BAUSCH-BL-2018-036007

PATIENT
  Age: 49 Year
  Sex: Female

DRUGS (1)
  1. MOVIPREP [Suspect]
     Active Substance: ASCORBIC ACID\POLYETHYLENE GLYCOL 3350\POTASSIUM CHLORIDE\SODIUM ASCORBATE\SODIUM CHLORIDE\SODIUM SULFATE
     Indication: BOWEL PREPARATION
     Dosage: 2 L OF SOLUTION, IN 2 HOURS IN THE EVENING
     Route: 048
     Dates: start: 20180626, end: 20180626

REACTIONS (6)
  - Diarrhoea [Recovered/Resolved]
  - Large intestine perforation [Recovered/Resolved]
  - Vomiting [Recovered/Resolved]
  - Peritonitis [Recovered/Resolved]
  - Diverticular perforation [Recovered/Resolved]
  - Pain [Recovered/Resolved]

NARRATIVE: CASE EVENT DATE: 20180626
